FAERS Safety Report 12293860 (Version 1)
Quarter: 2016Q2

REPORT INFORMATION
  Report Type: Report from Study
  Country: US (occurrence: US)
  Receive Date: 20160422
  Receipt Date: 20160422
  Transmission Date: 20160815
  Serious: No
  Sender: FDA-Public Use
  Company Number: PHEH2016US009770

PATIENT
  Sex: Female

DRUGS (1)
  1. AMLODIPINE [Suspect]
     Active Substance: AMLODIPINE BESYLATE
     Indication: PRODUCT USED FOR UNKNOWN INDICATION
     Route: 065

REACTIONS (13)
  - Cardiac flutter [Unknown]
  - Localised infection [Unknown]
  - Hypersensitivity [Unknown]
  - Abdominal pain upper [Unknown]
  - Peripheral swelling [Unknown]
  - Diarrhoea [Unknown]
  - Erythema [Unknown]
  - Nausea [Unknown]
  - Panic attack [Unknown]
  - Malaise [Unknown]
  - Nervousness [Unknown]
  - Abdominal pain lower [Unknown]
  - Dizziness [Unknown]
